FAERS Safety Report 8116215-5 (Version None)
Quarter: 2012Q1

REPORT INFORMATION
  Report Type: 
  Country: None (occurrence: None)
  Receive Date: 20120206
  Receipt Date: 20120130
  Transmission Date: 20120608
  Serious: Yes (Other)
  Sender: FDA-Public Use
  Company Number: KR-TEVA-320194ISR

PATIENT
  Age: 60 Year
  Sex: Male

DRUGS (2)
  1. METHOTREXATE [Suspect]
     Indication: LYMPHOMA
     Dosage: TOTAL DOSE: 105MG
     Route: 037
  2. METHOTREXATE [Suspect]
     Dosage: TOTAL DOSE: 30 000MG
     Route: 042

REACTIONS (1)
  - LEUKOENCEPHALOPATHY [None]
